FAERS Safety Report 5511431-0 (Version None)
Quarter: 2007Q4

REPORT INFORMATION
  Report Type: 
  Country: None (occurrence: None)
  Receive Date: 20071109
  Receipt Date: 20071102
  Transmission Date: 20080405
  Serious: Yes (Hospitalization, Other)
  Sender: FDA-Public Use
  Company Number: JP-JNJFOC-20071006130

PATIENT
  Sex: Male

DRUGS (6)
  1. FINIBAX [Suspect]
     Route: 041
  2. FINIBAX [Suspect]
     Indication: PNEUMONIA
     Route: 041
  3. PRIMPERAN INJ [Concomitant]
     Indication: GASTRITIS
     Route: 065
  4. SELBEX [Concomitant]
     Indication: GASTRITIS
     Route: 065
  5. ASPARA K [Concomitant]
     Indication: HYPOKALAEMIA
     Route: 065
  6. ALDACTONE [Concomitant]
     Indication: CARDIAC FAILURE
     Route: 065

REACTIONS (2)
  - HYPERGLYCAEMIA [None]
  - HYPERNATRAEMIA [None]
